FAERS Safety Report 5304461-5 (Version None)
Quarter: 2007Q2

REPORT INFORMATION
  Report Type: 
  Country: None (occurrence: None)
  Receive Date: 20070423
  Receipt Date: 20070412
  Transmission Date: 20071010
  Serious: Yes (Hospitalization)
  Sender: FDA-Public Use
  Company Number: US-BRISTOL-MYERS SQUIBB COMPANY-13754726

PATIENT
  Age: 71 Year
  Sex: Male

DRUGS (10)
  1. PRINIVIL [Suspect]
     Route: 048
  2. GATIFLOXACIN [Suspect]
     Indication: PNEUMONIA
     Route: 048
  3. ENOXAPARIN SODIUM [Suspect]
     Indication: ATRIAL FIBRILLATION
     Route: 058
  4. ALBUTEROL [Concomitant]
  5. ALLOPURINOL [Concomitant]
  6. DIGOXIN [Concomitant]
  7. DILTIAZEM HCL [Concomitant]
  8. GLYBURIDE [Concomitant]
  9. OMEPRAZOLE [Concomitant]
  10. WARFARIN [Concomitant]

REACTIONS (3)
  - ABDOMINAL HAEMATOMA [None]
  - EOSINOPHILIA [None]
  - RASH [None]
